FAERS Safety Report 4503879-8 (Version None)
Quarter: 2004Q3

REPORT INFORMATION
  Report Type: 
  Country: None (occurrence: None)
  Receive Date: 20040928
  Receipt Date: 20040617
  Transmission Date: 20050211
  Serious: No
  Sender: FDA-Public Use
  Company Number: 04P-163-0263994-00

PATIENT
  Age: 69 Year
  Sex: Female
  Weight: 59.4212 kg

DRUGS (9)
  1. HUMIRA [Suspect]
     Indication: RHEUMATOID ARTHRITIS
     Dosage: 40 MG, 1 IN 2 WK, SUBCUTANEOUS
     Route: 058
     Dates: start: 20031101, end: 20040604
  2. PREDNISONE [Concomitant]
  3. FOLIC ACID [Concomitant]
  4. LEVOTHYROXINE SODIUM [Concomitant]
  5. ESOMEPRAZOLE [Concomitant]
  6. CALCIUM WITH VITAMIN D [Concomitant]
  7. CYANOCOBALAMIN [Concomitant]
  8. PARACETAMOL [Concomitant]
  9. TRAMADOL HCL [Concomitant]

REACTIONS (4)
  - CONDITION AGGRAVATED [None]
  - PYREXIA [None]
  - RASH PRURITIC [None]
  - SKIN LESION [None]
